FAERS Safety Report 6438180-9 (Version None)
Quarter: 2009Q4

REPORT INFORMATION
  Report Type: 
  Country: None (occurrence: None)
  Receive Date: 20091112
  Receipt Date: 20090915
  Transmission Date: 20100525
  Serious: Yes (Hospitalization)
  Sender: FDA-Public Use
  Company Number: IT-PFIZER INC-2009294059

PATIENT
  Age: 51 Year
  Sex: Female

DRUGS (4)
  1. MEDROL [Suspect]
     Indication: RHEUMATOID ARTHRITIS
     Dosage: UNK
     Dates: start: 20090117, end: 20090817
  2. CYMBALTA [Concomitant]
     Dosage: UNK
  3. HYDROXYCHLOROQUINE PHOSPHATE [Concomitant]
     Dosage: UNK
  4. DELORAZEPAM [Concomitant]
     Dosage: UNK

REACTIONS (1)
  - CHEST PAIN [None]
